FAERS Safety Report 5903068-6 (Version None)
Quarter: 2008Q3

REPORT INFORMATION
  Report Type: 
  Country: None (occurrence: None)
  Receive Date: 20080930
  Receipt Date: 20080923
  Transmission Date: 20090109
  Serious: Yes (Hospitalization)
  Sender: FDA-Public Use
  Company Number: US-ROCHE-581415

PATIENT
  Sex: Male
  Weight: 81.6 kg

DRUGS (10)
  1. CAPECITABINE [Suspect]
     Indication: HEPATIC NEOPLASM MALIGNANT
     Dosage: DOSE: 1000 MG AM AND 1000 MG PM
     Route: 048
  2. CLONOPIN [Concomitant]
  3. CARDURA [Concomitant]
  4. COREG [Concomitant]
  5. DIAZEPAM [Concomitant]
  6. DIOVAN [Concomitant]
  7. LASIX [Concomitant]
  8. RESTORIL [Concomitant]
  9. ZOLOFT [Concomitant]
  10. IMODIUM [Concomitant]

REACTIONS (2)
  - FALL [None]
  - UPPER LIMB FRACTURE [None]
